FAERS Safety Report 4883324-3 (Version None)
Quarter: 2006Q1

REPORT INFORMATION
  Report Type: 
  Country: None (occurrence: None)
  Receive Date: 20060118
  Receipt Date: 20060116
  Transmission Date: 20060701
  Serious: Yes (Other)
  Sender: FDA-Public Use
  Company Number: US-GLAXOSMITHKLINE-A0589435A

PATIENT
  Age: 34 Year
  Sex: Female

DRUGS (4)
  1. LAMICTAL [Suspect]
     Indication: BIPOLAR DISORDER
     Dosage: 100MG TWICE PER DAY
     Route: 048
     Dates: start: 20050101
  2. ORTHO EVRA [Concomitant]
  3. RESTORIL [Concomitant]
  4. SEROQUEL [Concomitant]

REACTIONS (3)
  - AMNESIA [None]
  - BREATH ODOUR [None]
  - DYSPRAXIA [None]
